FAERS Safety Report 5862422-1 (Version None)
Quarter: 2008Q3

REPORT INFORMATION
  Report Type: 
  Country: None (occurrence: None)
  Receive Date: 20080826
  Receipt Date: 20080818
  Transmission Date: 20090109
  Serious: Yes (Life-Threatening)
  Sender: FDA-Public Use
  Company Number: 2007-02872

PATIENT
  Age: 58 Year
  Sex: Male
  Weight: 69 kg

DRUGS (17)
  1. VELCADE [Suspect]
     Indication: MULTIPLE MYELOMA
     Dosage: 2.2 MG, INTRAVENOUS
     Route: 042
     Dates: start: 20070703, end: 20070727
  2. DECADRON [Suspect]
     Indication: MULTIPLE MYELOMA
     Dosage: 20 MG, INTRAVENOUS
     Route: 042
     Dates: start: 20070703, end: 20070728
  3. TASMOLIN(BIPERIDEN) [Suspect]
     Indication: BIPOLAR DISORDER
     Dosage: 6.00 MG, ORAL
     Route: 048
  4. LULLAN(PEROSPIRONE HYDROCHLORIDE) [Suspect]
     Indication: BIPOLAR DISORDER
     Dosage: 24.00 MG, ORAL
     Route: 048
  5. PENFILL N (INSULIN HUMAN INJECTION, ISOPHANE) [Concomitant]
  6. PENFILL R (INSULIN HUMAN) [Concomitant]
  7. LORAZEPAM [Concomitant]
  8. LITHIUM CARBONATE [Concomitant]
  9. NITRAZEPAM [Concomitant]
  10. RHYTHMY (RILMAZAFONE) [Concomitant]
  11. ALOSENN (TARAXACUM OFFICINALE, ACHILLEA, SENNA LEAF, RUBIA ROOT TINCTU [Concomitant]
  12. OMEPRAZOLE [Concomitant]
  13. BAKTAR 9SULFAMETHOXAZOLE, TRIMETHOPRIM) [Concomitant]
  14. ALLOPURINOL [Concomitant]
  15. MAGNESIUM OXIDE (MAGNESIUM OXIDE) [Concomitant]
  16. ITRIZOLE 9ITRACONAZOLE) [Concomitant]
  17. FUNGUARD (NIKETHAMIDE, BENZYLPENICILLIN SODIUM, CINEOLE, GUAIFENESIN, [Concomitant]

REACTIONS (12)
  - ALANINE AMINOTRANSFERASE INCREASED [None]
  - ANAEMIA [None]
  - ASPARTATE AMINOTRANSFERASE INCREASED [None]
  - C-REACTIVE PROTEIN INCREASED [None]
  - CONSTIPATION [None]
  - FUNGAL INFECTION [None]
  - HYPERGLYCAEMIA [None]
  - PLATELET COUNT DECREASED [None]
  - ROAD TRAFFIC ACCIDENT [None]
  - UNEVALUABLE EVENT [None]
  - VARICELLA [None]
  - WEIGHT INCREASED [None]
